FAERS Safety Report 4446321-8 (Version None)
Quarter: 2004Q3

REPORT INFORMATION
  Report Type: 
  Country: None (occurrence: None)
  Receive Date: 20040802
  Receipt Date: 20040610
  Transmission Date: 20050211
  Serious: No
  Sender: FDA-Public Use
  Company Number: 2004-117210-NL

PATIENT
  Age: 33 Year
  Sex: Female
  Weight: 61.4 kg

DRUGS (5)
  1. NUVARING [Suspect]
     Indication: CONTRACEPTION
     Dosage: DF DAILY VAGINAL
     Route: 067
     Dates: start: 20030201
  2. NUVARING [Suspect]
     Indication: ENDOMETRIOSIS
     Dosage: DF DAILY VAGINAL
     Route: 067
     Dates: start: 20030201
  3. PRENATAL IRON TABLET [Concomitant]
  4. PROTONIX [Concomitant]
  5. CITRIC ACID [Concomitant]

REACTIONS (3)
  - OLIGOMENORRHOEA [None]
  - WEIGHT INCREASED [None]
  - WITHDRAWAL BLEEDING IRREGULAR [None]
